FAERS Safety Report 25377238 (Version 1)
Quarter: 2025Q2

REPORT INFORMATION
  Report Type: Spontaneous
  Country: PT (occurrence: PT)
  Receive Date: 20250530
  Receipt Date: 20250530
  Transmission Date: 20250717
  Serious: Yes (Hospitalization, Other)
  Sender: ROCHE
  Company Number: PT-ROCHE-10000273595

PATIENT
  Age: 51 Year
  Sex: Female

DRUGS (1)
  1. OCREVUS [Suspect]
     Active Substance: OCRELIZUMAB
     Indication: Primary progressive multiple sclerosis
     Route: 042
     Dates: start: 2012

REACTIONS (6)
  - Pneumonia [Unknown]
  - Chronic obstructive pulmonary disease [Unknown]
  - B-lymphocyte count decreased [Unknown]
  - Monoparesis [Unknown]
  - Ataxia [Unknown]
  - Cystitis [Unknown]

NARRATIVE: CASE EVENT DATE: 20180101
